FAERS Safety Report 11142016 (Version 1)
Quarter: 2015Q2

REPORT INFORMATION
  Report Type: Spontaneous
  Country: US (occurrence: US)
  Receive Date: 20150527
  Receipt Date: 20150527
  Transmission Date: 20150821
  Serious: Yes (Other)
  Sender: FDA-Public Use
  Company Number: US-PFIZER INC-2015174093

PATIENT
  Age: 55 Year
  Sex: Female
  Weight: 118 kg

DRUGS (2)
  1. LYRICA [Suspect]
     Active Substance: PREGABALIN
     Indication: FIBROMYALGIA
     Dosage: 50 MG, UNK
  2. LYRICA [Suspect]
     Active Substance: PREGABALIN
     Dosage: UNK (CUT HER MEDICATION IN HALF)

REACTIONS (7)
  - Arthropathy [Unknown]
  - Tremor [Unknown]
  - Pain [Unknown]
  - Suicidal behaviour [Recovered/Resolved]
  - Depression [Unknown]
  - Intentional product misuse [Unknown]
  - Swelling [Unknown]
